FAERS Safety Report 6213779-3 (Version None)
Quarter: 2009Q2

REPORT INFORMATION
  Report Type: 
  Country: None (occurrence: None)
  Receive Date: 20090602
  Receipt Date: 20090520
  Transmission Date: 20091009
  Serious: Yes (Death, Hospitalization)
  Sender: FDA-Public Use
  Company Number: 236743J08USA

PATIENT
  Age: 65 Year
  Sex: Female
  Weight: 87 kg

DRUGS (9)
  1. REBIF [Suspect]
     Indication: MULTIPLE SCLEROSIS
     Dosage: 44 MCG, 3 IN 1 WEEKS, SUBCUTANEOUS
     Route: 058
     Dates: start: 20021122, end: 20081227
  2. METOPROLOL SUCCINATE [Concomitant]
  3. DYAZIDE [Concomitant]
  4. LEVOTHYROXINE [Concomitant]
  5. POTASSIUM CHLORIDE [Concomitant]
  6. SIMVASTATIN [Concomitant]
  7. CHOLESTOFF(SITOSTEROL) [Concomitant]
  8. UNSPECIFIED ANTI-VIRAL MEDICATION (ANTIVIRALS NOS) [Concomitant]
  9. IBUPROFEN [Concomitant]

REACTIONS (7)
  - BONE NEOPLASM MALIGNANT [None]
  - DENTAL CARIES [None]
  - FEEDING TUBE COMPLICATION [None]
  - LIP AND/OR ORAL CAVITY CANCER [None]
  - LYMPH NODE CANCER METASTATIC [None]
  - SKIN GRAFT [None]
  - TONGUE NEOPLASM MALIGNANT STAGE UNSPECIFIED [None]
